FAERS Safety Report 4939121-3 (Version None)
Quarter: 2006Q1

REPORT INFORMATION
  Report Type: 
  Country: None (occurrence: None)
  Receive Date: 20060306
  Receipt Date: 20060221
  Transmission Date: 20060701
  Serious: Yes (Hospitalization, Other)
  Sender: FDA-Public Use
  Company Number: 2005155757

PATIENT
  Age: 51 Year
  Sex: Female

DRUGS (7)
  1. ZELDOX (CAPSULES) (ZIPRASIDONE) [Suspect]
     Indication: SCHIZOPHRENIA, RESIDUAL TYPE
     Dosage: 120 MG, ORAL
     Route: 048
     Dates: start: 20040310, end: 20040415
  2. EDRONAX (REBOXETINE) [Suspect]
     Indication: ILL-DEFINED DISORDER
     Dosage: 6 MG, ORAL
     Route: 048
     Dates: start: 20031101
  3. SOLIAN (AMISULPRIDE) [Suspect]
     Indication: ILL-DEFINED DISORDER
     Dosage: 400 MG, ORAL
     Route: 048
     Dates: start: 20040421, end: 20040428
  4. FLUPENTIXOL (FLUPENTIXOL) [Suspect]
     Indication: ILL-DEFINED DISORDER
     Dosage: 2 MG
     Dates: end: 20040516
  5. MAGNESIUM (MAGNESIUM) [Concomitant]
  6. ZYPREXA [Concomitant]
  7. LEVOTHYROXINE SODIUM [Concomitant]

REACTIONS (2)
  - DRUG INTERACTION [None]
  - ELECTROCARDIOGRAM QT CORRECTED INTERVAL PROLONGED [None]
